FAERS Safety Report 5518486-8 (Version None)
Quarter: 2007Q4

REPORT INFORMATION
  Report Type: 
  Country: None (occurrence: None)
  Receive Date: 20071113
  Receipt Date: 20071113
  Transmission Date: 20080405
  Serious: No
  Sender: FDA-Public Use
  Company Number: None

PATIENT
  Age: 60 Year
  Sex: Male
  Weight: 90.7194 kg

DRUGS (2)
  1. EQUATE ATHLETES FOOT LIQUID SPRAY TOLNAFTATE 1% WAL-MART AND HEALTH CA [Suspect]
     Indication: ONYCHOMYCOSIS
     Dosage: COVER AREA AFTER BATHING
     Dates: start: 20031010, end: 20071101
  2. EQUATE ATHLETES FOOT LIQUID SPRAY TOLNAFTATE 1% WAL-MART AND HEALTH CA [Suspect]
     Indication: PROPHYLAXIS
     Dosage: COVER AREA AFTER BATHING
     Dates: start: 20031010, end: 20071101

REACTIONS (2)
  - PHARMACEUTICAL PRODUCT COMPLAINT [None]
  - SKIN ODOUR ABNORMAL [None]
